FAERS Safety Report 4392014-5 (Version None)
Quarter: 2004Q3

REPORT INFORMATION
  Report Type: 
  Country: None (occurrence: None)
  Receive Date: 20040702
  Receipt Date: 20040628
  Transmission Date: 20050211
  Serious: Yes (Other)
  Sender: FDA-Public Use
  Company Number: US-JNJFOC-20040601811

PATIENT
  Age: 19 Month
  Sex: Female
  Weight: 9.5255 kg

DRUGS (3)
  1. MOTRIN [Suspect]
     Indication: PYREXIA
     Dosage: 74.8 MG, 1 IN 1 TOTAL, ORAL
     Route: 048
     Dates: start: 20040506, end: 20040506
  2. CEFZIL [Suspect]
     Indication: PNEUMONIA
     Dosage: INJECTION
     Dates: start: 20040506
  3. CHILDREN'S TYLENOL SUSPENSION PRODUCT (SUSPENSION) ACETAMINOPHEN [Concomitant]

REACTIONS (14)
  - ABNORMAL BEHAVIOUR [None]
  - CRYING [None]
  - DROOLING [None]
  - DRUG HYPERSENSITIVITY [None]
  - FEELING ABNORMAL [None]
  - HEADACHE [None]
  - HERPANGINA [None]
  - LETHARGY [None]
  - ORAL DISCOMFORT [None]
  - SCREAMING [None]
  - SLEEP DISORDER [None]
  - THROAT IRRITATION [None]
  - TONGUE ULCERATION [None]
  - TYMPANIC MEMBRANE HYPERAEMIA [None]
